FAERS Safety Report 5644647-3 (Version None)
Quarter: 2008Q1

REPORT INFORMATION
  Report Type: 
  Country: None (occurrence: None)
  Receive Date: 20080229
  Receipt Date: 20070503
  Transmission Date: 20080703
  Serious: No
  Sender: FDA-Public Use
  Company Number: A0649872A

PATIENT
  Age: 66 Year
  Sex: Female

DRUGS (9)
  1. VALTREX [Suspect]
     Dosage: 500MG PER DAY
     Route: 048
     Dates: start: 20070401, end: 20070501
  2. ADVIL [Concomitant]
  3. HYDROCHLOROTHIAZIDE [Concomitant]
  4. NEXIUM [Concomitant]
  5. PEPCID [Concomitant]
  6. MUPIROCIN [Concomitant]
  7. FLONASE [Concomitant]
  8. VITAMIN D [Concomitant]
  9. FOSAMAX [Concomitant]

REACTIONS (8)
  - ABDOMINAL PAIN [None]
  - DIZZINESS [None]
  - DYSPNOEA [None]
  - FATIGUE [None]
  - FEELING ABNORMAL [None]
  - HEADACHE [None]
  - NAUSEA [None]
  - PAIN [None]
